FAERS Safety Report 18712533 (Version 1)
Quarter: 2021Q1

REPORT INFORMATION
  Report Type: Spontaneous
  Country: US (occurrence: US)
  Receive Date: 20210107
  Receipt Date: 20210107
  Transmission Date: 20210419
  Serious: No
  Sender: FDA-Public Use
  Company Number: None

PATIENT
  Age: 62 Year
  Sex: Female
  Weight: 90 kg

DRUGS (12)
  1. METOPROLOL TARTRATE PO [Concomitant]
  2. FENTANYL TD [Concomitant]
  3. GABAPENTIN PO [Concomitant]
  4. ONDANSETRON PO [Concomitant]
  5. NINLARO PO [Concomitant]
  6. HYDROMORPHONE [Concomitant]
     Active Substance: HYDROMORPHONE
  7. XPOVIO [Suspect]
     Active Substance: SELINEXOR
     Indication: PLASMA CELL MYELOMA
     Dosage: ?          OTHER FREQUENCY:ONCE WEEKLY;?
     Route: 048
     Dates: start: 20201204
  8. FLONASE ALLERGY RELIEF [Concomitant]
     Active Substance: FLUTICASONE PROPIONATE
  9. OMEPRAZOLE PO [Concomitant]
  10. PROVENTIL HFA IN [Concomitant]
  11. NORVASC PO [Concomitant]
  12. ASPIRIN PO [Concomitant]

REACTIONS (1)
  - Hallucination, visual [None]

NARRATIVE: CASE EVENT DATE: 20210107
